FAERS Safety Report 25103950 (Version 1)
Quarter: 2025Q1

REPORT INFORMATION
  Report Type: Spontaneous
  Country: AU (occurrence: AU)
  Receive Date: 20250321
  Receipt Date: 20250321
  Transmission Date: 20250409
  Serious: Yes (Death, Hospitalization)
  Sender: TAKEDA
  Company Number: AU-TAKEDA-2025TUS029128

PATIENT
  Age: 72 Year
  Sex: Male

DRUGS (1)
  1. ENTYVIO [Suspect]
     Active Substance: VEDOLIZUMAB
     Indication: Colitis ulcerative

REACTIONS (4)
  - Acute myocardial infarction [Fatal]
  - Acute respiratory distress syndrome [Unknown]
  - Pneumonitis [Fatal]
  - Cough [Unknown]

NARRATIVE: CASE EVENT DATE: 20250211
